FAERS Safety Report 5066163-2 (Version None)
Quarter: 2006Q3

REPORT INFORMATION
  Report Type: 
  Country: None (occurrence: None)
  Receive Date: 20060705
  Receipt Date: 20060515
  Transmission Date: 20061208
  Serious: Yes (Life-Threatening, Hospitalization, Disabling)
  Sender: FDA-Public Use
  Company Number: US-2005-024347

PATIENT
  Age: 45 Year
  Sex: Female
  Weight: 50 kg

DRUGS (8)
  1. YASMIN [Suspect]
     Indication: MENOPAUSE
     Dosage: 1X/DAY
     Dates: start: 20020505, end: 20040601
  2. VITAMIN E [Concomitant]
  3. SYNTHROID [Concomitant]
  4. MAGNESIUM (MAGNESIUM) [Concomitant]
  5. WELLBUTRIN [Concomitant]
  6. VITAMIN B6 [Concomitant]
  7. MULTIVITAMINS (PANTHENOL, RETINOL) [Concomitant]
  8. ASCORBIC ACID [Concomitant]

REACTIONS (1)
  - DEEP VEIN THROMBOSIS [None]
